FAERS Safety Report 6771234-6 (Version None)
Quarter: 2010Q2

REPORT INFORMATION
  Report Type: 
  Country: None (occurrence: None)
  Receive Date: 20100616
  Receipt Date: 20100415
  Transmission Date: 20101027
  Serious: Yes (Death, Hospitalization)
  Sender: FDA-Public Use
  Company Number: US-ASTRAZENECA-2010SE04183

PATIENT
  Age: 15440 Day
  Sex: Male
  Weight: 102.1 kg

DRUGS (6)
  1. SEROQUEL [Suspect]
     Indication: BIPOLAR I DISORDER
     Route: 048
     Dates: start: 20050101
  2. SEROQUEL [Suspect]
     Indication: SCHIZOPHRENIA
     Route: 048
     Dates: start: 20050101
  3. SEROQUEL [Suspect]
     Indication: DEPRESSION
     Route: 048
     Dates: start: 20050101
  4. SEROQUEL [Suspect]
     Route: 048
     Dates: start: 20070601, end: 20071101
  5. SEROQUEL [Suspect]
     Route: 048
     Dates: start: 20070601, end: 20071101
  6. SEROQUEL [Suspect]
     Route: 048
     Dates: start: 20070601, end: 20071101

REACTIONS (7)
  - BLOOD CHOLESTEROL INCREASED [None]
  - FALL [None]
  - HEAD INJURY [None]
  - HYPERLIPIDAEMIA [None]
  - SKULL FRACTURE [None]
  - TYPE 2 DIABETES MELLITUS [None]
  - WEIGHT INCREASED [None]
